FAERS Safety Report 20641473 (Version 1)
Quarter: 2022Q1

REPORT INFORMATION
  Report Type: Spontaneous
  Country: US (occurrence: US)
  Receive Date: 20220328
  Receipt Date: 20220328
  Transmission Date: 20220423
  Serious: Yes (Other)
  Sender: FDA-Public Use
  Company Number: US-drreddys-LIT/USA/22/0147964

PATIENT
  Age: 49 Year
  Sex: Male

DRUGS (3)
  1. IMATINIB MESYLATE [Suspect]
     Active Substance: IMATINIB MESYLATE
     Indication: Product used for unknown indication
  2. IMATINIB MESYLATE [Suspect]
     Active Substance: IMATINIB MESYLATE
  3. IMATINIB MESYLATE [Suspect]
     Active Substance: IMATINIB MESYLATE

REACTIONS (2)
  - Thrombocytopenia [Recovering/Resolving]
  - Drug level below therapeutic [Unknown]
